FAERS Safety Report 16785996 (Version 1)
Quarter: 2019Q3

REPORT INFORMATION
  Report Type: Spontaneous
  Country: US (occurrence: US)
  Receive Date: 20190717
  Receipt Date: 20190717
  Transmission Date: 20191005
  Serious: Yes (Hospitalization)
  Sender: FDA-Public Use
  Company Number: None

PATIENT
  Age: 88 Year
  Sex: Male
  Weight: 79.38 kg

DRUGS (1)
  1. WARFARIN [Suspect]
     Active Substance: WARFARIN
     Indication: DEEP VEIN THROMBOSIS
     Route: 048
     Dates: start: 20170825

REACTIONS (5)
  - Gastric ulcer haemorrhage [None]
  - Anticoagulation drug level above therapeutic [None]
  - Nasopharyngitis [None]
  - Oesophagitis [None]
  - Cough [None]

NARRATIVE: CASE EVENT DATE: 20190130
